FAERS Safety Report 9046499 (Version 1)
Quarter: 2013Q1

REPORT INFORMATION
  Report Type: Spontaneous
  Country: JP (occurrence: JP)
  Receive Date: 20130204
  Receipt Date: 20130204
  Transmission Date: 20140127
  Serious: Yes (Hospitalization)
  Sender: FDA-Public Use
  Company Number: JP-009507513-1301JPN014719

PATIENT
  Sex: 0

DRUGS (1)
  1. JANUVIA TABLETS 50MG [Suspect]
     Dosage: UNK
     Route: 048

REACTIONS (1)
  - Adverse event [Unknown]
